FAERS Safety Report 22023874 (Version 1)
Quarter: 2023Q1

REPORT INFORMATION
  Report Type: Spontaneous
  Country: US (occurrence: None)
  Receive Date: 20230223
  Receipt Date: 20230223
  Transmission Date: 20230418
  Serious: No
  Sender: FDA-Public Use
  Company Number: US-ROCHE-2999952

PATIENT
  Age: 60 Year
  Sex: Female
  Weight: 47.670 kg

DRUGS (2)
  1. XOLAIR [Suspect]
     Active Substance: OMALIZUMAB
     Indication: Urticaria chronic
     Dosage: 150 MG SHOT PER ARM ;ONGOING: YES
     Route: 065
  2. PERCOCET [Concomitant]
     Active Substance: ACETAMINOPHEN\OXYCODONE HYDROCHLORIDE
     Indication: Abdominal pain upper
     Dosage: 7.5/325 MG, 1 TABLETS EVERY 6 HOURS AS NEEDED ;ONGOING: YES
     Route: 048

REACTIONS (2)
  - COVID-19 [Unknown]
  - Headache [Recovered/Resolved]

NARRATIVE: CASE EVENT DATE: 20220105
